FAERS Safety Report 13644708 (Version 1)
Quarter: 2017Q2

REPORT INFORMATION
  Report Type: Spontaneous
  Country: US (occurrence: US)
  Receive Date: 20170612
  Receipt Date: 20170612
  Transmission Date: 20170830
  Serious: No
  Sender: FDA-Public Use
  Company Number: US-ROCHE-1325438

PATIENT
  Sex: Female

DRUGS (1)
  1. XELODA [Suspect]
     Active Substance: CAPECITABINE
     Indication: GASTRIC CANCER
     Dosage: 14 DAYS ON FOLLOWED BY 7 DAYS OFF, 3 TABLETS
     Route: 048
     Dates: start: 20131106

REACTIONS (3)
  - Decreased appetite [Unknown]
  - Fatigue [Unknown]
  - Peripheral coldness [Unknown]
